FAERS Safety Report 5015364-8 (Version None)
Quarter: 2006Q2

REPORT INFORMATION
  Report Type: 
  Country: None (occurrence: None)
  Receive Date: 20060601
  Receipt Date: 20060523
  Transmission Date: 20061013
  Serious: Yes (Hospitalization)
  Sender: FDA-Public Use
  Company Number: US-JNJFOC-20060505558

PATIENT
  Sex: Male
  Weight: 104.33 kg

DRUGS (7)
  1. FENTANYL TRANSDERMAL SYSTEM [Suspect]
     Route: 062
  2. LYRICA [Concomitant]
     Indication: PAIN
     Route: 048
  3. PROZAC [Concomitant]
     Indication: DEPRESSION
     Route: 048
  4. METOPROLOL [Concomitant]
     Indication: HYPERTENSION
     Route: 048
  5. FOSAMAX [Concomitant]
     Indication: OSTEOPOROSIS
     Route: 048
  6. ASCORBIC ACID [Concomitant]
     Indication: VITAMIN SUPPLEMENTATION
     Route: 048
  7. VITAMIN B COMPLEX CAP [Concomitant]
     Indication: VITAMIN SUPPLEMENTATION
     Route: 048

REACTIONS (4)
  - ARTHROPATHY [None]
  - ASTHENIA [None]
  - BACK DISORDER [None]
  - WEIGHT FLUCTUATION [None]
